FAERS Safety Report 20197786 (Version 6)
Quarter: 2022Q1

REPORT INFORMATION
  Report Type: Spontaneous
  Country: JP (occurrence: JP)
  Receive Date: 20211217
  Receipt Date: 20220322
  Transmission Date: 20220424
  Serious: Yes (Hospitalization, Other)
  Sender: FDA-Public Use
  Company Number: JP-AMGEN-JPNSP2021197496

PATIENT
  Age: 66 Year
  Sex: Male

DRUGS (4)
  1. BLINCYTO [Suspect]
     Active Substance: BLINATUMOMAB
     Indication: B precursor type acute leukaemia
     Dosage: UNK, QD
     Route: 065
     Dates: start: 20211119, end: 202111
  2. BLINCYTO [Suspect]
     Active Substance: BLINATUMOMAB
     Dosage: UNK
     Route: 065
     Dates: start: 20211207
  3. BLINCYTO [Suspect]
     Active Substance: BLINATUMOMAB
     Dosage: UNK
     Route: 065
     Dates: start: 20220104, end: 2022
  4. BLINCYTO [Suspect]
     Active Substance: BLINATUMOMAB
     Dosage: 28 MICROGRAM, QD
     Route: 065
     Dates: start: 20220308

REACTIONS (11)
  - Intervertebral discitis [Recovering/Resolving]
  - Cytokine release syndrome [Not Recovered/Not Resolved]
  - Central nervous system leukaemia [Unknown]
  - Delirium [Unknown]
  - Device related infection [Unknown]
  - Bile duct stenosis [Unknown]
  - Gastrointestinal neoplasm [Unknown]
  - Ileus [Unknown]
  - Intestinal obstruction [Not Recovered/Not Resolved]
  - Insomnia [Recovering/Resolving]
  - Paraesthesia [Unknown]

NARRATIVE: CASE EVENT DATE: 20211201
